FAERS Safety Report 16636808 (Version 1)
Quarter: 2019Q3

REPORT INFORMATION
  Report Type: Spontaneous
  Country: US (occurrence: US)
  Receive Date: 20190726
  Receipt Date: 20190726
  Transmission Date: 20191004
  Serious: No
  Sender: FDA-Public Use
  Company Number: US-HORIZON-DUE-0431-2019

PATIENT
  Age: 58 Year
  Sex: Female

DRUGS (2)
  1. DUEXIS [Suspect]
     Active Substance: FAMOTIDINE\IBUPROFEN
     Indication: PAIN IN EXTREMITY
     Dosage: 1 TAB TID
     Dates: start: 20190128
  2. VENTOLIN [Concomitant]
     Active Substance: ALBUTEROL SULFATE

REACTIONS (4)
  - Product dose omission [Unknown]
  - Vomiting [Unknown]
  - Nausea [Unknown]
  - Memory impairment [Unknown]
